FAERS Safety Report 5342639-5 (Version None)
Quarter: 2007Q2

REPORT INFORMATION
  Report Type: 
  Country: None (occurrence: None)
  Receive Date: 20070601
  Receipt Date: 20070528
  Transmission Date: 20071010
  Serious: Yes (Other)
  Sender: FDA-Public Use
  Company Number: GB-BOEHRINGER INGELHEIM PHARMACEUTICALS, INC.-2007-BP-07040YA

PATIENT
  Sex: Male
  Weight: 72 kg

DRUGS (1)
  1. FLOMAX [Suspect]
     Route: 048

REACTIONS (3)
  - FLOPPY IRIS SYNDROME [None]
  - IRIS HAEMORRHAGE [None]
  - IRIS INJURY [None]
